FAERS Safety Report 15492381 (Version 1)
Quarter: 2018Q4

REPORT INFORMATION
  Report Type: Spontaneous
  Country: US (occurrence: US)
  Receive Date: 20181012
  Receipt Date: 20181012
  Transmission Date: 20190205
  Serious: Yes (Other)
  Sender: FDA-Public Use
  Company Number: US-PFIZER INC-2018404205

PATIENT
  Age: 47 Year
  Sex: Female

DRUGS (1)
  1. GENOTROPIN MQ [Suspect]
     Active Substance: SOMATROPIN
     Dosage: 1 MG, DAILY

REACTIONS (4)
  - Blood triglycerides increased [Unknown]
  - Glycosylated haemoglobin increased [Unknown]
  - Blood glucose increased [Unknown]
  - Total cholesterol/HDL ratio increased [Unknown]
